FAERS Safety Report 6468097-5 (Version None)
Quarter: 2009Q4

REPORT INFORMATION
  Report Type: 
  Country: None (occurrence: None)
  Receive Date: 20091127
  Receipt Date: 20091111
  Transmission Date: 20100525
  Serious: Yes (Other)
  Sender: FDA-Public Use
  Company Number: 2009AL007292

PATIENT
  Sex: Male

DRUGS (9)
  1. FEVERALL [Suspect]
     Dosage: 1 GM PO
     Route: 048
  2. LOSEC [Concomitant]
  3. CYCLIZINE [Concomitant]
  4. OCTREOTIDE ACETATE [Concomitant]
  5. NICOTINAMIDE [Concomitant]
  6. PYRIDOXINE [Concomitant]
  7. TYROSINE [Concomitant]
  8. FLUOXETINE [Concomitant]
  9. MESALAZINE [Concomitant]

REACTIONS (1)
  - HEPATIC ENZYME INCREASED [None]
